FAERS Safety Report 10007429 (Version 2)
Quarter: 2014Q2

REPORT INFORMATION
  Report Type: Report from Study
  Country: IE (occurrence: IE)
  Receive Date: 20140313
  Receipt Date: 20140414
  Transmission Date: 20141212
  Serious: Yes (Death)
  Sender: FDA-Public Use
  Company Number: IE-GLAXOSMITHKLINE-B0976483A

PATIENT
  Sex: Female

DRUGS (6)
  1. TYVERB [Suspect]
     Indication: BREAST CANCER
     Dosage: 1250MG PER DAY
     Route: 048
     Dates: start: 20130403
  2. MAXOLON [Concomitant]
  3. VALOID [Concomitant]
  4. IMODIUM [Concomitant]
  5. LUSTRAL [Concomitant]
  6. STILNOCT [Concomitant]

REACTIONS (3)
  - Disease progression [Fatal]
  - Jaundice [Unknown]
  - Portal vein occlusion [Unknown]
